FAERS Safety Report 13448331 (Version 5)
Quarter: 2017Q3

REPORT INFORMATION
  Report Type: Report from Study
  Country: None (occurrence: NZ)
  Receive Date: 20170417
  Receipt Date: 20170921
  Transmission Date: 20171127
  Serious: Yes (Hospitalization, Other)
  Sender: FDA-Public Use
  Company Number: NZ-ABBVIE-17K-118-1945068-00

PATIENT
  Sex: Male
  Weight: 125 kg

DRUGS (3)
  1. HUMIRA [Suspect]
     Active Substance: ADALIMUMAB
     Route: 058
     Dates: start: 2017
  2. HUMIRA [Suspect]
     Active Substance: ADALIMUMAB
     Indication: CROHN^S DISEASE
     Route: 058
     Dates: start: 20170303, end: 201704
  3. AZATHIOPRINE. [Concomitant]
     Active Substance: AZATHIOPRINE
     Indication: PRODUCT USED FOR UNKNOWN INDICATION

REACTIONS (9)
  - Cyst [Not Recovered/Not Resolved]
  - Frequent bowel movements [Unknown]
  - Drug level decreased [Not Recovered/Not Resolved]
  - Ileostomy [Unknown]
  - Surgery [Unknown]
  - Drug effect incomplete [Not Recovered/Not Resolved]
  - Crohn^s disease [Unknown]
  - Gastrointestinal stoma complication [Unknown]
  - Infection [Not Recovered/Not Resolved]

NARRATIVE: CASE EVENT DATE: 2017
